FAERS Safety Report 9114817 (Version 1)
Quarter: 2013Q1

REPORT INFORMATION
  Report Type: Report from Study
  Country: US (occurrence: US)
  Receive Date: 20130128
  Receipt Date: 20130128
  Transmission Date: 20140127
  Serious: No
  Sender: FDA-Public Use
  Company Number: US-VERTEX PHARMACEUTICALS INC.-2013-001187

PATIENT
  Age: 35 Year
  Sex: Male

DRUGS (3)
  1. VX-950 (TELAPREVIR) [Suspect]
     Indication: HEPATITIS C
     Dosage: 750 MG, TID
     Route: 048
     Dates: start: 20121016, end: 20130114
  2. RIBASPHERE [Suspect]
     Indication: HEPATITIS C
     Dosage: 600 MG AM, 800 MG PM
     Route: 048
     Dates: start: 20121016
  3. PEGASYS [Suspect]
     Indication: HEPATITIS C
     Dosage: 180 ?G, QW
     Route: 058
     Dates: start: 20121016

REACTIONS (2)
  - Panic attack [Unknown]
  - Anxiety [Unknown]
